FAERS Safety Report 6492410-6 (Version None)
Quarter: 2009Q4

REPORT INFORMATION
  Report Type: 
  Country: None (occurrence: None)
  Receive Date: 20091214
  Receipt Date: 20091203
  Transmission Date: 20100525
  Serious: Yes (Hospitalization)
  Sender: FDA-Public Use
  Company Number: US-KINGPHARMUSA00001-K200900407

PATIENT
  Age: 66 Year
  Sex: Female

DRUGS (16)
  1. ALTACE [Suspect]
     Dosage: 5 MG, BID
     Route: 048
     Dates: start: 20081223, end: 20090206
  2. SEPTRA [Suspect]
     Indication: PROPHYLAXIS URINARY TRACT INFECTION
     Dosage: 0.5 DF, QOD
     Route: 048
     Dates: start: 20081223, end: 20090206
  3. NOVALGIN                           /00039501/ [Suspect]
     Indication: PAIN
     Dosage: 30 GTT, PRN
     Route: 048
     Dates: start: 20081101, end: 20090206
  4. CELLCEPT [Suspect]
     Indication: IMMUNOSUPPRESSION
     Dosage: 500 MG, QID
     Route: 048
     Dates: start: 20081101, end: 20090208
  5. CELLCEPT [Suspect]
     Dosage: 1500 MG, QD
     Route: 048
     Dates: start: 20090217
  6. SANDIMMUNE [Suspect]
     Indication: IMMUNOSUPPRESSION
     Dosage: 425 MG, QD
     Route: 048
     Dates: start: 20081101, end: 20090208
  7. SANDIMMUNE [Suspect]
     Dosage: 275 MG, QD
     Route: 048
     Dates: start: 20090209
  8. VALCYTE [Suspect]
     Indication: INFECTION PROPHYLAXIS
     Dosage: 450 MG, QOD
     Route: 048
     Dates: start: 20081101, end: 20090206
  9. BISOPROLOL AWD [Concomitant]
     Indication: TACHYCARDIA
     Dosage: 2.5 MG, UNK
     Route: 048
     Dates: start: 20081223
  10. CALCIMAGON-D3 [Concomitant]
     Indication: RENAL OSTEODYSTROPHY
     Dosage: 1 DF, BID
     Route: 048
     Dates: start: 20081101
  11. FALITHROM [Concomitant]
     Indication: VENOUS THROMBOSIS
     Dosage: 3 MG, UNK
     Route: 048
     Dates: start: 20090130, end: 20090207
  12. LOCOL [Concomitant]
     Indication: CARDIOVASCULAR EVENT PROPHYLAXIS
     Dosage: 40 MG, UNK
     Route: 048
     Dates: start: 20081101
  13. MCP                                /00041901/ [Concomitant]
     Dosage: 60 GTT, UNK
     Route: 048
     Dates: start: 20081201, end: 20090213
  14. PANTOZOL                           /01263202/ [Concomitant]
     Indication: PROPHYLAXIS AGAINST GASTROINTESTINAL ULCER
     Dosage: 40 MG, UNK
     Route: 048
     Dates: start: 20081101
  15. PREDNISOLONE ACETATE [Concomitant]
     Indication: IMMUNOSUPPRESSION
     Dosage: 5 MG, UNK
     Route: 048
     Dates: start: 20081101
  16. TORASEMIDE [Concomitant]
     Indication: HYPERTENSION
     Dosage: 20 MG, UNK
     Route: 048
     Dates: start: 20081101

REACTIONS (6)
  - COUGH [None]
  - LEUKOPENIA [None]
  - NASOPHARYNGITIS [None]
  - OROPHARYNGEAL PAIN [None]
  - RENAL IMPAIRMENT [None]
  - URINARY TRACT INFECTION [None]
